FAERS Safety Report 9995757 (Version 12)
Quarter: 2016Q3

REPORT INFORMATION
  Report Type: Report from Study
  Country: DE (occurrence: DE)
  Receive Date: 20140311
  Receipt Date: 20160715
  Transmission Date: 20161109
  Serious: Yes (Hospitalization)
  Sender: FDA-Public Use
  Company Number: DE-B.I. PHARMACEUTICALS,INC./RIDGEFIELD-2014-BI-08281II

PATIENT
  Age: 66 Year
  Sex: Male
  Weight: 99 kg

DRUGS (27)
  1. CISPLATIN. [Suspect]
     Active Substance: CISPLATIN
     Indication: BILE DUCT ADENOCARCINOMA
     Dosage: 0 MG
     Route: 042
     Dates: start: 20131210, end: 20140114
  2. KREON [Concomitant]
     Active Substance: PANCRELIPASE
     Indication: DYSPEPSIA
     Dosage: DOSE PER APPLICATION AND DAILY DOSE: 120000 IE
     Route: 048
     Dates: start: 201302
  3. LANTUS [Concomitant]
     Active Substance: INSULIN GLARGINE
     Indication: DIABETES MELLITUS
     Dosage: DOSE PER APPLICATION AND DAILY DOSE: 28 IE
     Route: 058
     Dates: start: 2012
  4. FRAGMIN P-FORTE [Concomitant]
     Indication: ATRIAL FIBRILLATION
     Dosage: DOSE PER APPLICATION AND DAILY DOSE: 10000 IE
     Route: 058
     Dates: start: 20140121
  5. CPS-PULVER [Concomitant]
     Indication: HYPERKALAEMIA
     Dosage: DOSE PER APPLICATION AND DAILY DOSE: 2 BAGS  A 15 G
     Route: 048
     Dates: start: 20140207, end: 20140207
  6. BIBW 2992 [Suspect]
     Active Substance: AFATINIB
     Indication: BILE DUCT ADENOCARCINOMA
     Dosage: 30 MG
     Route: 048
     Dates: start: 20131210, end: 20140222
  7. SPIRONOLACTON [Concomitant]
     Active Substance: SPIRONOLACTONE
     Indication: ASCITES
     Dosage: 100 MG
     Route: 048
     Dates: start: 20140204, end: 20140206
  8. BIBW 2992 [Suspect]
     Active Substance: AFATINIB
     Dosage: 20 MG
     Route: 048
     Dates: start: 20140313
  9. GEMCITABINE [Suspect]
     Active Substance: GEMCITABINE\GEMCITABINE HYDROCHLORIDE
     Indication: BILE DUCT ADENOCARCINOMA
     Dosage: 1402 MG
     Route: 042
     Dates: start: 20131210
  10. APIDRA [Concomitant]
     Active Substance: INSULIN GLULISINE
     Indication: DIABETES MELLITUS
     Route: 058
     Dates: start: 2000
  11. FILGRASTIM [Concomitant]
     Active Substance: FILGRASTIM
     Indication: PROPHYLAXIS
     Route: 058
     Dates: start: 20140111
  12. ADENURIC [Concomitant]
     Active Substance: FEBUXOSTAT
     Indication: CHRONIC KIDNEY DISEASE
     Dosage: 80 MG
     Route: 048
     Dates: start: 201308
  13. DIGI MACK [Concomitant]
     Indication: CORONARY ARTERY DISEASE
     Dosage: 0.1 MG
     Route: 048
     Dates: start: 2012
  14. SIMVASTATIN. [Concomitant]
     Active Substance: SIMVASTATIN
     Indication: CORONARY ARTERY DISEASE
     Dosage: 40 MG
     Route: 048
     Dates: start: 2010
  15. TILIDIN COMP [Concomitant]
     Active Substance: NALOXONE HYDROCHLORIDE\TILIDINE HYDROCHLORIDE
     Indication: MYALGIA
     Route: 048
     Dates: start: 2011
  16. TOREM [Concomitant]
     Active Substance: TORSEMIDE
     Indication: CORONARY ARTERY DISEASE
     Dosage: 10 MG
     Route: 048
     Dates: start: 2011, end: 20140203
  17. TOLPERISON-HYDROCHLORID [Concomitant]
     Indication: MYALGIA
     Dosage: 50 MG
     Route: 048
     Dates: start: 2011
  18. IBUPROFEN. [Concomitant]
     Active Substance: IBUPROFEN
     Indication: BACK PAIN
     Route: 048
     Dates: start: 20140121
  19. CPS-PULVER [Concomitant]
     Dosage: DOSE PER APPLICATION AND DAILY DOSE:1 BAGS  A 15 G
     Route: 048
     Dates: start: 20140208, end: 20140208
  20. PANTOPRAZOL [Concomitant]
     Active Substance: PANTOPRAZOLE SODIUM
     Indication: PROPHYLAXIS
     Dosage: 40 MG
     Route: 048
     Dates: start: 201309
  21. NOVAMINSULFON [Concomitant]
     Active Substance: METAMIZOLE
     Indication: MYALGIA
     Route: 048
     Dates: start: 2011
  22. DEKRISTOL [Concomitant]
     Active Substance: CHOLECALCIFEROL
     Indication: CHRONIC KIDNEY DISEASE
     Dosage: DOSE PER APPLICATIONA AND DAILY DOSE: 20000 IE
     Route: 048
     Dates: start: 2012
  23. TOREM [Concomitant]
     Active Substance: TORSEMIDE
     Indication: OEDEMA
  24. FRAGMIN P-FORTE [Concomitant]
     Indication: THROMBOSIS
     Dosage: DOSE PER APPLICATION AND DAILY DOSE: 10000 IE
     Route: 058
     Dates: start: 20131127, end: 20131216
  25. SPIRONOLACTON [Concomitant]
     Active Substance: SPIRONOLACTONE
     Indication: OEDEMA
     Dosage: 50 MG
     Route: 048
     Dates: start: 20140207
  26. BISOPIDOL [Concomitant]
     Indication: CORONARY ARTERY DISEASE
     Dosage: 5 MG
     Route: 048
     Dates: start: 2011
  27. TOREM [Concomitant]
     Active Substance: TORSEMIDE
     Indication: ASCITES
     Dosage: 15 MG
     Route: 048
     Dates: start: 20140204

REACTIONS (11)
  - Infection [Recovered/Resolved]
  - Platelet count decreased [Recovered/Resolved]
  - Chronic kidney disease [Recovered/Resolved]
  - Sepsis [Recovered/Resolved]
  - Anaemia [Recovered/Resolved]
  - Platelet count decreased [Recovered/Resolved]
  - Platelet count decreased [Recovered/Resolved]
  - Infection [Recovered/Resolved]
  - Chronic kidney disease [Recovered/Resolved]
  - Leukopenia [Recovered/Resolved]
  - Clostridium difficile colitis [Recovered/Resolved]

NARRATIVE: CASE EVENT DATE: 20140223
